FAERS Safety Report 21986601 (Version 1)
Quarter: 2023Q1

REPORT INFORMATION
  Report Type: Spontaneous
  Country: US (occurrence: US)
  Receive Date: 20230213
  Receipt Date: 20230213
  Transmission Date: 20230417
  Serious: No
  Sender: FDA-Public Use
  Company Number: US-ALLERGAN-2301194US

PATIENT

DRUGS (2)
  1. VUITY [Suspect]
     Active Substance: PILOCARPINE HYDROCHLORIDE
     Indication: Hypermetropia
     Dosage: ONE DROP IN EACH EYE ONCE DAILY
     Dates: start: 202301
  2. VUITY [Suspect]
     Active Substance: PILOCARPINE HYDROCHLORIDE
     Indication: Myopia

REACTIONS (1)
  - Therapeutic response shortened [Unknown]

NARRATIVE: CASE EVENT DATE: 20230101
